FAERS Safety Report 13517650 (Version 4)
Quarter: 2017Q3

REPORT INFORMATION
  Report Type: Spontaneous
  Country: DE (occurrence: DE)
  Receive Date: 20170505
  Receipt Date: 20170818
  Transmission Date: 20171127
  Serious: Yes (Hospitalization, Other)
  Sender: FDA-Public Use
  Company Number: DE-PFIZER INC-2017193208

PATIENT
  Age: 65 Year
  Sex: Female

DRUGS (5)
  1. TOREM [Concomitant]
     Active Substance: TORSEMIDE
     Dosage: 10 MG, DAILY
     Route: 048
  2. XGEVA [Suspect]
     Active Substance: DENOSUMAB
     Indication: BREAST CANCER METASTATIC
     Dosage: UNK
  3. IBRANCE [Suspect]
     Active Substance: PALBOCICLIB
     Indication: BREAST CANCER METASTATIC
     Dosage: 125 MG, UNK
     Route: 048
     Dates: start: 20170127
  4. SPIRONOLACTON HEXAL [Concomitant]
     Dosage: 50 MG, DAILY
     Route: 048
  5. FASLODEX [Suspect]
     Active Substance: FULVESTRANT
     Indication: BREAST CANCER METASTATIC
     Dosage: 500 MG, MONTHLY
     Route: 042
     Dates: start: 20170207, end: 20170407

REACTIONS (4)
  - Acute kidney injury [Recovering/Resolving]
  - Ascites [Unknown]
  - Transaminases increased [Recovering/Resolving]
  - Acute hepatic failure [Unknown]

NARRATIVE: CASE EVENT DATE: 20170427
